FAERS Safety Report 6700150-0 (Version None)
Quarter: 2010Q2

REPORT INFORMATION
  Report Type: 
  Country: None (occurrence: None)
  Receive Date: 20100426
  Receipt Date: 20091221
  Transmission Date: 20101027
  Serious: Yes (Other)
  Sender: FDA-Public Use
  Company Number: WAES 0912USA03006

PATIENT
  Age: 63 Year
  Sex: Female

DRUGS (9)
  1. SINGULAIR [Suspect]
     Indication: CHRONIC OBSTRUCTIVE PULMONARY DISEASE
     Dosage: 10 MG/DAILY/PO
     Route: 047
  2. PROVENTIL [Suspect]
  3. PROAIR HFA [Suspect]
  4. ADVAIR HFA [Suspect]
  5. DIOVAN [Suspect]
  6. ASPIRIN [Suspect]
  7. GLUMETZA [Suspect]
  8. TOPIRAMATE [Suspect]
  9. SPIRIVA [Suspect]

REACTIONS (6)
  - BRAIN NEOPLASM [None]
  - CONVULSION [None]
  - DIZZINESS [None]
  - DRY MOUTH [None]
  - OFF LABEL USE [None]
  - TREMOR [None]
